FAERS Safety Report 11662428 (Version 1)
Quarter: 2015Q4

REPORT INFORMATION
  Report Type: Report from Study
  Country: US (occurrence: US)
  Receive Date: 20151027
  Receipt Date: 20151027
  Transmission Date: 20160304
  Serious: No
  Sender: FDA-Public Use
  Company Number: US-AMGEN-USASP2015110500

PATIENT
  Age: 64 Year
  Sex: Female

DRUGS (4)
  1. ETODOLAC. [Concomitant]
     Active Substance: ETODOLAC
     Indication: ARTHRALGIA
     Dosage: UNK UNK, BID
     Dates: end: 201509
  2. ENBREL [Suspect]
     Active Substance: ETANERCEPT
     Indication: PSORIATIC ARTHROPATHY
  3. ENBREL [Suspect]
     Active Substance: ETANERCEPT
     Indication: PSORIASIS
     Dosage: 50 MG, QWK
     Route: 065
     Dates: start: 20150727
  4. ETODOLAC. [Concomitant]
     Active Substance: ETODOLAC
     Dosage: UNK, QD
     Dates: start: 20150923

REACTIONS (8)
  - Feeling abnormal [Unknown]
  - Arthralgia [Unknown]
  - Injection site erythema [Unknown]
  - Fatigue [Unknown]
  - Depression [Unknown]
  - Blood glucose decreased [Unknown]
  - Tooth disorder [Unknown]
  - Dental operation [Unknown]

NARRATIVE: CASE EVENT DATE: 2015
